FAERS Safety Report 15232807 (Version 1)
Quarter: 2018Q3

REPORT INFORMATION
  Report Type: Spontaneous
  Country: US (occurrence: US)
  Receive Date: 20180709
  Receipt Date: 20180709
  Transmission Date: 20181010
  Serious: Yes (Hospitalization)
  Sender: FDA-Public Use
  Company Number: None

PATIENT
  Age: 60 Year
  Sex: Male
  Weight: 99.34 kg

DRUGS (10)
  1. BLOOD PRESSURE MONITOR [Concomitant]
  2. LACTOLUSE SOLUTION [Concomitant]
  3. DAILY?VITE [Concomitant]
  4. SPIRONOLACTONE. [Suspect]
     Active Substance: SPIRONOLACTONE
     Indication: FLUID RETENTION
     Dosage: ?          QUANTITY:1 PILL DAILY;?
     Route: 048
     Dates: start: 20170705, end: 20170815
  5. OMEPRAZOLE. [Concomitant]
     Active Substance: OMEPRAZOLE
  6. ATENOLOL. [Concomitant]
     Active Substance: ATENOLOL
  7. SPIRONOLACTONE. [Suspect]
     Active Substance: SPIRONOLACTONE
     Indication: HYPERTENSION
     Dosage: ?          QUANTITY:1 PILL DAILY;?
     Route: 048
     Dates: start: 20170705, end: 20170815
  8. FEROSIMIDE [Concomitant]
  9. ZOLOFT [Concomitant]
     Active Substance: SERTRALINE HYDROCHLORIDE
  10. XIFAXAN [Concomitant]
     Active Substance: RIFAXIMIN

REACTIONS (1)
  - Gynaecomastia [None]

NARRATIVE: CASE EVENT DATE: 201801
